FAERS Safety Report 13937159 (Version 3)
Quarter: 2017Q4

REPORT INFORMATION
  Report Type: Spontaneous
  Country: JP (occurrence: JP)
  Receive Date: 20170905
  Receipt Date: 20171114
  Transmission Date: 20180320
  Serious: Yes (Hospitalization)
  Sender: FDA-Public Use
  Company Number: JP-OTSUKA-2017_018919

PATIENT
  Age: 45 Year
  Sex: Female
  Weight: 46 kg

DRUGS (2)
  1. PLETAAL OD TABLETS 50MG [Suspect]
     Active Substance: CILOSTAZOL
     Indication: ANTICOAGULANT THERAPY
     Dosage: 200 MG, DAILY DOSE
     Route: 048
     Dates: start: 201401, end: 201401
  2. HEPARIN SODIUM. [Concomitant]
     Active Substance: HEPARIN SODIUM
     Indication: ANTICOAGULANT THERAPY
     Dosage: 10000 UNITS, DAILY DOSE
     Route: 065
     Dates: start: 201401

REACTIONS (2)
  - Artery dissection [Recovered/Resolved with Sequelae]
  - Arterial intramural haematoma [Recovered/Resolved with Sequelae]

NARRATIVE: CASE EVENT DATE: 201401
